FAERS Safety Report 16820448 (Version 2)
Quarter: 2019Q4

REPORT INFORMATION
  Report Type: Spontaneous
  Country: CA (occurrence: CA)
  Receive Date: 20190918
  Receipt Date: 20191219
  Transmission Date: 20200122
  Serious: Yes (Other)
  Sender: FDA-Public Use
  Company Number: CA-ORION CORPORATION ORION PHARMA-TREX2019-3439

PATIENT
  Age: 67 Year
  Sex: Female

DRUGS (16)
  1. ORENCIA [Suspect]
     Active Substance: ABATACEPT
     Indication: PRODUCT USED FOR UNKNOWN INDICATION
     Route: 065
  2. ZINGIBER OFFICINALE [Concomitant]
     Active Substance: GINGER
     Route: 048
  3. VALSARTAN. [Concomitant]
     Active Substance: VALSARTAN
     Route: 065
  4. XALATAN [Concomitant]
     Active Substance: LATANOPROST
     Route: 065
  5. CIMZIA [Suspect]
     Active Substance: CERTOLIZUMAB PEGOL
     Indication: PRODUCT USED FOR UNKNOWN INDICATION
     Route: 065
  6. HYDROXYCHLOROQUINE SULFATE. [Suspect]
     Active Substance: HYDROXYCHLOROQUINE SULFATE
     Indication: PRODUCT USED FOR UNKNOWN INDICATION
     Route: 065
  7. FUROSEMIDE. [Concomitant]
     Active Substance: FUROSEMIDE
     Route: 065
  8. ACTEMRA [Suspect]
     Active Substance: TOCILIZUMAB
     Indication: PRODUCT USED FOR UNKNOWN INDICATION
     Route: 065
  9. ESTROGEL [Concomitant]
     Active Substance: ESTRADIOL
     Route: 065
  10. METHOTREXATE (TRADE NAME UNKNOWN) [Suspect]
     Active Substance: METHOTREXATE
     Indication: RHEUMATOID ARTHRITIS
     Route: 065
  11. ENBREL [Suspect]
     Active Substance: ETANERCEPT
     Indication: RHEUMATOID ARTHRITIS
     Route: 065
  12. ERGOCALCIFEROL. [Concomitant]
     Active Substance: ERGOCALCIFEROL
     Route: 065
  13. DORZOLAMIDE HYDROCHLORIDE AND TIMOLOL MALEATE [Concomitant]
     Active Substance: DORZOLAMIDE HYDROCHLORIDE\TIMOLOL MALEATE
     Route: 065
  14. MORPHINE [Concomitant]
     Active Substance: MORPHINE
     Route: 065
  15. CIMZIA [Suspect]
     Active Substance: CERTOLIZUMAB PEGOL
     Route: 058
  16. POTASSIUM CHLORIDE. [Concomitant]
     Active Substance: POTASSIUM CHLORIDE
     Route: 065

REACTIONS (9)
  - Drug ineffective [Unknown]
  - Bronchitis [Unknown]
  - Colitis microscopic [Unknown]
  - C-reactive protein increased [Unknown]
  - Glaucoma [Unknown]
  - Synovitis [Unknown]
  - Diverticulitis [Unknown]
  - Off label use [Unknown]
  - Drug intolerance [Unknown]
